FAERS Safety Report 13269588 (Version 1)
Quarter: 2017Q1

REPORT INFORMATION
  Report Type: Report from Study
  Country: US (occurrence: US)
  Receive Date: 20170224
  Receipt Date: 20170224
  Transmission Date: 20170428
  Serious: Yes (Death, Other)
  Sender: FDA-Public Use
  Company Number: US-MYLANLABS-2017M1010633

PATIENT

DRUGS (4)
  1. MITOXANTRONE [Suspect]
     Active Substance: MITOXANTRONE HYDROCHLORIDE
     Indication: ACUTE LEUKAEMIA
     Dosage: 40MG/M2 OVER 60-120 MINUTES, ADMINISTERED 12 HOURS AFTER CYTARABINE ON DAY 9
     Route: 040
  2. ALVOCIDIB [Suspect]
     Active Substance: ALVOCIDIB
     Dosage: 35MG/M2 OVER 4 HOURS
     Route: 050
  3. CYTARABINE. [Suspect]
     Active Substance: CYTARABINE
     Indication: ACUTE LEUKAEMIA
     Dosage: 2G/M2, 72 HOUR CONTINUOUS INFUSION STARTED ON DAY 6 (667MG/M2 PER 24 HOURS)
     Route: 050
  4. ALVOCIDIB [Suspect]
     Active Substance: ALVOCIDIB
     Indication: ACUTE LEUKAEMIA
     Dosage: 25MG/M2 OVER 30 MINUTES FOR THREE DAYS (1-3)
     Route: 040

REACTIONS (1)
  - Multiple organ dysfunction syndrome [Fatal]
